FAERS Safety Report 16747044 (Version 3)
Quarter: 2020Q1

REPORT INFORMATION
  Report Type: Spontaneous
  Country: US (occurrence: US)
  Receive Date: 20190827
  Receipt Date: 20200306
  Transmission Date: 20200409
  Serious: No
  Sender: FDA-Public Use
  Company Number: US-SA-2019SA236793

PATIENT
  Age: 52 Year
  Sex: Male

DRUGS (8)
  1. DUPIXENT [Suspect]
     Active Substance: DUPILUMAB
     Indication: DERMATITIS ATOPIC
     Dosage: 600 MG, 1X
     Route: 058
     Dates: start: 20190806, end: 20190806
  2. CLOBETASOL [Concomitant]
     Active Substance: CLOBETASOL
  3. PREDNISOLONE. [Concomitant]
     Active Substance: PREDNISOLONE
  4. ALBUTEROL [SALBUTAMOL] [Concomitant]
     Active Substance: ALBUTEROL
  5. FLOVENT [Concomitant]
     Active Substance: FLUTICASONE PROPIONATE
  6. TRIAMCINOLONE [Concomitant]
     Active Substance: TRIAMCINOLONE
  7. DUPIXENT [Suspect]
     Active Substance: DUPILUMAB
     Dosage: 300 MG, QOW
     Route: 058
     Dates: start: 2019
  8. HYDROCHOROTHIAZIDE [Concomitant]
     Active Substance: HYDROCHLOROTHIAZIDE

REACTIONS (4)
  - Lacrimation increased [Not Recovered/Not Resolved]
  - Ocular hyperaemia [Not Recovered/Not Resolved]
  - Dermatitis atopic [Not Recovered/Not Resolved]
  - Alopecia [Not Recovered/Not Resolved]

NARRATIVE: CASE EVENT DATE: 2019
